FAERS Safety Report 6844240-0 (Version None)
Quarter: 2010Q3

REPORT INFORMATION
  Report Type: 
  Country: None (occurrence: None)
  Receive Date: 20100714
  Receipt Date: 20100714
  Transmission Date: 20110219
  Serious: Yes (Hospitalization)
  Sender: FDA-Public Use
  Company Number: None

PATIENT
  Age: 63 Year
  Sex: Male
  Weight: 95.3 kg

DRUGS (4)
  1. HEPARIN [Suspect]
     Indication: CATHETERISATION CARDIAC
     Dosage: 5000 UNITS ONCE IV
     Route: 042
     Dates: start: 20100416, end: 20100417
  2. HEPARIN [Suspect]
     Indication: CORONARY ARTERIAL STENT INSERTION
     Dosage: 5000 UNITS ONCE IV
     Route: 042
     Dates: start: 20100416, end: 20100417
  3. HEPARIN [Suspect]
     Indication: CORONARY ARTERY DISEASE
     Dosage: 5000 UNITS ONCE IV
     Route: 042
     Dates: start: 20100416, end: 20100417
  4. EPTIFIBATIDE [Suspect]
     Dosage: 15 ML PER HOUR IV
     Route: 042
     Dates: start: 20100416, end: 20100417

REACTIONS (2)
  - HEPARIN-INDUCED THROMBOCYTOPENIA [None]
  - THROMBOCYTOPENIA [None]
